FAERS Safety Report 16694867 (Version 5)
Quarter: 2020Q2

REPORT INFORMATION
  Report Type: Report from Study
  Country: US (occurrence: US)
  Receive Date: 20190812
  Receipt Date: 20200429
  Transmission Date: 20200713
  Serious: Yes (Other)
  Sender: FDA-Public Use
  Company Number: PHEH2019US033407

PATIENT
  Age: 36 Year
  Sex: Female

DRUGS (1)
  1. GILENYA [Suspect]
     Active Substance: FINGOLIMOD HYDROCHLORIDE
     Indication: MULTIPLE SCLEROSIS
     Dosage: 0.5 MG, QD
     Route: 048
     Dates: start: 20190807

REACTIONS (10)
  - Diarrhoea [Unknown]
  - Nervousness [Unknown]
  - Muscle twitching [Unknown]
  - Seizure [Unknown]
  - Abdominal pain [Unknown]
  - Menstrual disorder [Unknown]
  - Vomiting [Unknown]
  - Drug hypersensitivity [Unknown]
  - Vision blurred [Recovering/Resolving]
  - Blindness [Recovering/Resolving]

NARRATIVE: CASE EVENT DATE: 20190807
